FAERS Safety Report 8275198-8 (Version None)
Quarter: 2012Q2

REPORT INFORMATION
  Report Type: 
  Country: None (occurrence: None)
  Receive Date: 20120411
  Receipt Date: 20120405
  Transmission Date: 20120825
  Serious: Yes (Hospitalization)
  Sender: FDA-Public Use
  Company Number: IT-PFIZER INC-2012084768

PATIENT
  Age: 36 Year
  Sex: Male

DRUGS (3)
  1. METRONIDAZOLE [Suspect]
     Indication: LIVER ABSCESS
     Dosage: 1500 MG, 1X/DAY
     Route: 048
     Dates: start: 20120309, end: 20120316
  2. TARGOCID [Suspect]
     Dosage: 400 MG, 1X/DAY
     Route: 042
     Dates: start: 20120227, end: 20120314
  3. TAZOCIN [Suspect]
     Dosage: 13.5 G, 1X/DAY
     Route: 042
     Dates: start: 20120227, end: 20120313

REACTIONS (1)
  - AGRANULOCYTOSIS [None]
